FAERS Safety Report 4923493-X (Version None)
Quarter: 2006Q1

REPORT INFORMATION
  Report Type: 
  Country: None (occurrence: None)
  Receive Date: 20060221
  Receipt Date: 20060208
  Transmission Date: 20060701
  Serious: Yes (Other)
  Sender: FDA-Public Use
  Company Number: 2006019655

PATIENT
  Age: 71 Year
  Sex: Male
  Weight: 53.5244 kg

DRUGS (3)
  1. LIPITOR [Suspect]
     Indication: BLOOD CHOLESTEROL ABNORMAL
     Dosage: 40 MG (40 MG, 1 IN 1 D),
  2. METFORMIN HCL [Concomitant]
  3. TOPROL-XL [Concomitant]

REACTIONS (3)
  - CONDITION AGGRAVATED [None]
  - CORONARY ARTERY DISEASE [None]
  - DYSPHAGIA [None]
